FAERS Safety Report 16708901 (Version 2)
Quarter: 2019Q3

REPORT INFORMATION
  Report Type: Spontaneous
  Country: US (occurrence: US)
  Receive Date: 20190816
  Receipt Date: 20190823
  Transmission Date: 20191004
  Serious: No
  Sender: FDA-Public Use
  Company Number: US-BIOGEN-2019BI00774771

PATIENT
  Sex: Female

DRUGS (1)
  1. TECFIDERA [Suspect]
     Active Substance: DIMETHYL FUMARATE
     Indication: MULTIPLE SCLEROSIS
     Route: 065
     Dates: start: 20181115

REACTIONS (7)
  - Eye pain [Unknown]
  - Pruritus [Unknown]
  - Eye irritation [Unknown]
  - Multiple sclerosis [Unknown]
  - Feeling hot [Unknown]
  - Rash erythematous [Unknown]
  - Skin laceration [Unknown]
